FAERS Safety Report 7001495-X (Version None)
Quarter: 2010Q3

REPORT INFORMATION
  Report Type: 
  Country: None (occurrence: None)
  Receive Date: 20100920
  Receipt Date: 20100914
  Transmission Date: 20110219
  Serious: Yes (Other)
  Sender: FDA-Public Use
  Company Number: BR-ROCHE-727656

PATIENT
  Sex: Male
  Weight: 71 kg

DRUGS (4)
  1. RIVOTRIL [Suspect]
     Indication: SLEEP DISORDER THERAPY
     Route: 065
  2. DORMONID (ORAL) [Suspect]
     Indication: SLEEP DISORDER THERAPY
     Dosage: ONE TABLET A DAY
     Route: 048
     Dates: start: 20090101
  3. LISINOPRIL [Concomitant]
     Indication: HYPERTENSION
     Dosage: ONE TABLET A DAY
  4. OMEPRAZOLE [Concomitant]
     Indication: GASTRIC DISORDER
     Dosage: ONE TABLET A DAY
     Dates: start: 20080101

REACTIONS (4)
  - DRUG INEFFECTIVE [None]
  - INSOMNIA [None]
  - INTESTINAL FUNCTIONAL DISORDER [None]
  - PROSTATIC DISORDER [None]
